FAERS Safety Report 5866306-4 (Version None)
Quarter: 2008Q3

REPORT INFORMATION
  Report Type: 
  Country: None (occurrence: None)
  Receive Date: 20080901
  Receipt Date: 20080820
  Transmission Date: 20090109
  Serious: Yes (Other)
  Sender: FDA-Public Use
  Company Number: PHHY2008BR17857

PATIENT
  Age: 69 Year
  Sex: Male

DRUGS (10)
  1. PREXIGE [Suspect]
     Indication: PAIN
     Dosage: 400 MG, Q96H
     Route: 048
     Dates: start: 20080512, end: 20080515
  2. PREXIGE [Suspect]
     Indication: FRACTURED COCCYX
  3. PREXIGE [Suspect]
     Indication: HEAD INJURY
  4. VOLTAREN [Suspect]
     Dosage: UNK
     Dates: start: 20080516
  5. DIOVAN [Concomitant]
     Indication: HYPERTENSION
     Dosage: 160 MG/DAY
     Route: 048
     Dates: start: 20080701
  6. DIOVAN [Concomitant]
     Dosage: 80 MG/DAY
     Route: 048
     Dates: start: 20060101, end: 20080701
  7. ATENOLOL [Concomitant]
     Indication: HYPERTENSION
     Dosage: 1 TAB/DAY
     Route: 048
  8. BENERVA [Suspect]
     Indication: FACIAL PALSY
     Dosage: 1 TAB/DAY
  9. RUBRANOVA [Suspect]
     Indication: FACIAL PALSY
  10. METICORTEN [Suspect]
     Indication: FACIAL PALSY

REACTIONS (14)
  - BLOOD PRESSURE INCREASED [None]
  - BLOOD URINE PRESENT [None]
  - DIZZINESS [None]
  - FACIAL PALSY [None]
  - FALL [None]
  - FEELING ABNORMAL [None]
  - FEELING HOT [None]
  - HEAD DISCOMFORT [None]
  - HOT FLUSH [None]
  - HYDROCELE [None]
  - MALAISE [None]
  - SCROTAL SWELLING [None]
  - SPEECH DISORDER [None]
  - URINARY TRACT INFECTION [None]
